FAERS Safety Report 9463165 (Version 1)
Quarter: 2013Q3

REPORT INFORMATION
  Report Type: Spontaneous
  Country: TN (occurrence: TN)
  Receive Date: 20130817
  Receipt Date: 20130817
  Transmission Date: 20140515
  Serious: Yes (Other)
  Sender: FDA-Public Use
  Company Number: TN-JNJFOC-20130804515

PATIENT
  Age: 8 Year
  Sex: Female

DRUGS (2)
  1. MINOXIDIL 2% WOMEN 202 [Suspect]
     Route: 061
  2. MINOXIDIL 2% WOMEN 202 [Suspect]
     Indication: ALOPECIA AREATA
     Route: 061

REACTIONS (5)
  - Off label use [Unknown]
  - Psychotic disorder [Unknown]
  - Off label use [Unknown]
  - Therapeutic response unexpected [Unknown]
  - Hypertrichosis [Recovered/Resolved]
